FAERS Safety Report 16775207 (Version 1)
Quarter: 2019Q3

REPORT INFORMATION
  Report Type: Spontaneous
  Country: JP (occurrence: JP)
  Receive Date: 20190905
  Receipt Date: 20190905
  Transmission Date: 20191005
  Serious: Yes (Death)
  Sender: FDA-Public Use
  Company Number: JP-EISAI MEDICAL RESEARCH-EC-2018-048323

PATIENT
  Sex: Male

DRUGS (1)
  1. LENVIMA [Suspect]
     Active Substance: LENVATINIB
     Indication: HEPATOCELLULAR CARCINOMA
     Dosage: DOSE AND FREQUENCY UNKNOWN
     Route: 048
     Dates: start: 201804, end: 201806

REACTIONS (4)
  - Hepatic failure [Fatal]
  - Diarrhoea [Unknown]
  - Hepatic encephalopathy [Unknown]
  - Hepatic infarction [Unknown]

NARRATIVE: CASE EVENT DATE: 2018
